FAERS Safety Report 6524617-3 (Version None)
Quarter: 2010Q1

REPORT INFORMATION
  Report Type: 
  Country: None (occurrence: None)
  Receive Date: 20100104
  Receipt Date: 20091223
  Transmission Date: 20100710
  Serious: Yes (Hospitalization, Other)
  Sender: FDA-Public Use
  Company Number: DK-JNJFOC-20091009242

PATIENT
  Sex: Female
  Weight: 60 kg

DRUGS (5)
  1. REMICADE [Suspect]
     Indication: POUCHITIS
     Dosage: 1 INFUSION
     Route: 042
  2. REMICADE [Suspect]
     Indication: COLITIS ULCERATIVE
     Dosage: 1 TREATMENT
     Route: 042
  3. SOLU-MEDROL [Concomitant]
     Indication: PREMEDICATION
     Route: 042
  4. BONIVA [Concomitant]
     Indication: OSTEOPOROSIS
  5. CALCIUM AND VITAMIN D [Concomitant]

REACTIONS (2)
  - COLECTOMY [None]
  - SERUM SICKNESS [None]
